FAERS Safety Report 24304751 (Version 1)
Quarter: 2024Q3

REPORT INFORMATION
  Report Type: Spontaneous
  Country: US (occurrence: US)
  Receive Date: 20240910
  Receipt Date: 20240910
  Transmission Date: 20241016
  Serious: Yes (Other)
  Sender: TEVA
  Company Number: US-TEVA-VS-3227083

PATIENT
  Age: 62 Year
  Sex: Female

DRUGS (1)
  1. ALPRAZOLAM [Suspect]
     Active Substance: ALPRAZOLAM
     Indication: Product used for unknown indication
     Dosage: ROUND
     Route: 065

REACTIONS (5)
  - Confusional state [Unknown]
  - Anxiety [Unknown]
  - Panic reaction [Unknown]
  - Irritability [Unknown]
  - Depression [Unknown]
